FAERS Safety Report 5085489-X (Version None)
Quarter: 2006Q3

REPORT INFORMATION
  Report Type: 
  Country: None (occurrence: None)
  Receive Date: 20060816
  Receipt Date: 20060803
  Transmission Date: 20061208
  Serious: Yes (Other)
  Sender: FDA-Public Use
  Company Number: 212466

PATIENT
  Age: 62 Year
  Sex: Male
  Weight: 83 kg

DRUGS (7)
  1. TNKASE [Suspect]
     Indication: MYOCARDIAL INFARCTION
     Dosage: SINGLE, IV BOLUS
     Route: 040
     Dates: start: 20041124
  2. ENOXAPARIN SODIUM [Suspect]
     Indication: MYOCARDIAL INFARCTION
     Dosage: 1 MG/KG, Q12H, SUBCUTANEOUS
     Route: 058
     Dates: start: 20041124
  3. REOPRO [Suspect]
     Indication: MYOCARDIAL INFARCTION
     Dosage: IV BOLUS; SEE IMAGE
     Route: 040
     Dates: start: 20041124
  4. REOPRO [Suspect]
     Indication: MYOCARDIAL INFARCTION
     Dosage: IV BOLUS; SEE IMAGE
     Route: 040
     Dates: start: 20041124
  5. REOPRO [Suspect]
     Indication: MYOCARDIAL INFARCTION
     Dosage: IV BOLUS; SEE IMAGE
     Route: 040
     Dates: start: 20041124
  6. ASPIRIN [Suspect]
     Indication: ACUTE MYOCARDIAL INFARCTION
  7. CONTRAST MEDIA NOS(RADIOPAQUE MEDIA NOS) [Suspect]
     Indication: DIAGNOSTIC PROCEDURE

REACTIONS (4)
  - CARDIOGENIC SHOCK [None]
  - CYTOLYTIC HEPATITIS [None]
  - MULTI-ORGAN FAILURE [None]
  - PNEUMONIA [None]
